FAERS Safety Report 16858017 (Version 4)
Quarter: 2019Q4

REPORT INFORMATION
  Report Type: Report from Study
  Country: CO (occurrence: CO)
  Receive Date: 20190926
  Receipt Date: 20191101
  Transmission Date: 20200122
  Serious: Yes (Death, Hospitalization, Other)
  Sender: FDA-Public Use
  Company Number: CO-JNJFOC-20190819777

PATIENT
  Age: 75 Year
  Sex: Male
  Weight: 73 kg

DRUGS (2)
  1. IMBRUVICA [Suspect]
     Active Substance: IBRUTINIB
     Indication: MANTLE CELL LYMPHOMA
     Route: 048
     Dates: start: 20190710, end: 20190808
  2. IMBRUVICA [Suspect]
     Active Substance: IBRUTINIB
     Indication: B-CELL SMALL LYMPHOCYTIC LYMPHOMA

REACTIONS (11)
  - Death [Fatal]
  - Pyrexia [Recovered/Resolved]
  - Haemoglobin decreased [Recovered/Resolved]
  - Depressed mood [Unknown]
  - Hyperhidrosis [Recovered/Resolved]
  - Muscle spasms [Not Recovered/Not Resolved]
  - Pleural disorder [Unknown]
  - Headache [Not Recovered/Not Resolved]
  - Condition aggravated [Unknown]
  - Dehydration [Unknown]
  - Aphthous ulcer [Unknown]

NARRATIVE: CASE EVENT DATE: 2019
